FAERS Safety Report 5838637-5 (Version None)
Quarter: 2008Q3

REPORT INFORMATION
  Report Type: 
  Country: None (occurrence: None)
  Receive Date: 20080808
  Receipt Date: 20080709
  Transmission Date: 20090109
  Serious: No
  Sender: FDA-Public Use
  Company Number: A0736725A

PATIENT
  Age: 63 Year
  Sex: Male

DRUGS (5)
  1. ALTABAX [Suspect]
     Route: 061
     Dates: start: 20080705, end: 20080705
  2. PRINIVIL [Concomitant]
  3. ASPIRIN [Concomitant]
  4. PROTONIX [Concomitant]
  5. ZOCOR [Concomitant]

REACTIONS (2)
  - APPLICATION SITE IRRITATION [None]
  - APPLICATION SITE PRURITUS [None]
